FAERS Safety Report 26118884 (Version 1)
Quarter: 2025Q4

REPORT INFORMATION
  Report Type: Spontaneous
  Country: CN (occurrence: CN)
  Receive Date: 20251203
  Receipt Date: 20251203
  Transmission Date: 20260117
  Serious: Yes (Other)
  Sender: BEIGENE
  Company Number: CN-BEONEMEDICINES-BGN-2025-021151

PATIENT
  Age: 54 Year
  Sex: Male
  Weight: 81 kg

DRUGS (10)
  1. TISLELIZUMAB [Suspect]
     Active Substance: TISLELIZUMAB
     Indication: Oesophageal carcinoma
     Dosage: 200 MILLIGRAM
     Dates: start: 20251107, end: 20251107
  2. TISLELIZUMAB [Suspect]
     Active Substance: TISLELIZUMAB
     Dosage: 200 MILLIGRAM
     Route: 041
     Dates: start: 20251107, end: 20251107
  3. TISLELIZUMAB [Suspect]
     Active Substance: TISLELIZUMAB
     Dosage: 200 MILLIGRAM
     Route: 041
     Dates: start: 20251107, end: 20251107
  4. TISLELIZUMAB [Suspect]
     Active Substance: TISLELIZUMAB
     Dosage: 200 MILLIGRAM
     Dates: start: 20251107, end: 20251107
  5. DOCETAXEL [Suspect]
     Active Substance: DOCETAXEL
     Indication: Oesophageal carcinoma
     Dosage: 60 MILLIGRAM
     Dates: start: 20251108, end: 20251108
  6. DOCETAXEL [Suspect]
     Active Substance: DOCETAXEL
     Dosage: 60 MILLIGRAM
     Route: 041
     Dates: start: 20251108, end: 20251108
  7. DOCETAXEL [Suspect]
     Active Substance: DOCETAXEL
     Dosage: 80 MILLIGRAM
     Dates: start: 20251115, end: 20251115
  8. DOCETAXEL [Suspect]
     Active Substance: DOCETAXEL
     Dosage: 80 MILLIGRAM
     Route: 041
     Dates: start: 20251115, end: 20251115
  9. NEDAPLATIN [Suspect]
     Active Substance: NEDAPLATIN
     Indication: Oesophageal carcinoma
     Dosage: 60 MILLIGRAM
     Route: 041
     Dates: start: 20251108, end: 20251108
  10. NEDAPLATIN [Suspect]
     Active Substance: NEDAPLATIN
     Dosage: 60 MILLIGRAM
     Dates: start: 20251108, end: 20251108

REACTIONS (1)
  - Myelosuppression [Recovering/Resolving]

NARRATIVE: CASE EVENT DATE: 20251118
